FAERS Safety Report 5524200-2 (Version None)
Quarter: 2007Q4

REPORT INFORMATION
  Report Type: 
  Country: None (occurrence: None)
  Receive Date: 20071121
  Receipt Date: 20071113
  Transmission Date: 20080405
  Serious: Yes (Hospitalization, Other)
  Sender: FDA-Public Use
  Company Number: JP-PFIZER INC-2007093218

PATIENT
  Sex: Male
  Weight: 30 kg

DRUGS (7)
  1. GABAPEN [Suspect]
     Route: 048
  2. ALL OTHER THERAPEUTIC PRODUCTS [Interacting]
  3. PHENYTOIN SODIUM CAP [Concomitant]
     Route: 048
  4. POTASSIUM BROMIDE [Concomitant]
     Route: 048
  5. PHENOBARBITAL TAB [Concomitant]
     Route: 048
  6. ALESION [Concomitant]
     Route: 048
  7. AMBROXOL HYDROCHLORIDE [Concomitant]
     Route: 048

REACTIONS (6)
  - ASPIRATION [None]
  - BRADYCARDIA [None]
  - DRUG INTERACTION [None]
  - GASTROSTOMY [None]
  - PNEUMONIA ASPIRATION [None]
  - TRACHEOSTOMY [None]
